FAERS Safety Report 9185753 (Version 2)
Quarter: 2013Q2

REPORT INFORMATION
  Report Type: Spontaneous
  Country: US (occurrence: US)
  Receive Date: 20121031
  Receipt Date: 20130410
  Transmission Date: 20140414
  Serious: Yes (Other)
  Sender: FDA-Public Use
  Company Number: US-BAYER-2012-113484

PATIENT
  Age: 41 Year
  Sex: Female

DRUGS (6)
  1. YAZ [Suspect]
     Indication: CONTRACEPTION
     Dosage: UNK
     Dates: start: 2001, end: 2009
  2. YAZ [Suspect]
     Indication: CONTRACEPTION
     Dosage: UNK
     Dates: start: 2002, end: 2005
  3. YASMIN [Suspect]
     Dosage: UNK
     Dates: start: 2001, end: 2009
  4. YASMIN [Suspect]
     Dosage: UNK
     Dates: start: 2008, end: 2009
  5. EXCEDRIN MIGRAINE [Concomitant]
     Dosage: UNK UNK, PRN
  6. ADVIL [Concomitant]

REACTIONS (8)
  - Gallbladder disorder [None]
  - Cholecystitis chronic [None]
  - Emotional distress [None]
  - Injury [None]
  - Pain [None]
  - Anxiety [None]
  - Psychological trauma [None]
  - Abdominal pain upper [None]
